FAERS Safety Report 13239462 (Version 4)
Quarter: 2017Q1

REPORT INFORMATION
  Report Type: Report from Study
  Country: DE (occurrence: DE)
  Receive Date: 20170216
  Receipt Date: 20170328
  Transmission Date: 20170428
  Serious: Yes (Death, Hospitalization, Other)
  Sender: FDA-Public Use
  Company Number: DE-SA-2016SA123054

PATIENT
  Age: 73 Year
  Sex: Male
  Weight: 96 kg

DRUGS (9)
  1. JEVTANA [Suspect]
     Active Substance: CABAZITAXEL
     Indication: HORMONE-REFRACTORY PROSTATE CANCER
     Route: 042
     Dates: start: 20160613, end: 20160613
  2. ONDANSETRON [Concomitant]
     Active Substance: ONDANSETRON
  3. IBUPROFEN. [Concomitant]
     Active Substance: IBUPROFEN
  4. PANTOZOL [Concomitant]
     Active Substance: PANTOPRAZOLE SODIUM
  5. FENTANYL. [Concomitant]
     Active Substance: FENTANYL
  6. ONDANSETRON [Concomitant]
     Active Substance: ONDANSETRON
  7. AMPICILLIN [Concomitant]
     Active Substance: AMPICILLIN
  8. SULBACTAM [Concomitant]
     Active Substance: SULBACTAM
     Route: 042
  9. JEVTANA [Suspect]
     Active Substance: CABAZITAXEL
     Indication: HORMONE-REFRACTORY PROSTATE CANCER
     Dosage: DOSE:25
     Route: 042
     Dates: start: 20160418, end: 20160418

REACTIONS (7)
  - Febrile neutropenia [Recovered/Resolved]
  - Lung infection [Fatal]
  - Dyspnoea [Recovered/Resolved]
  - Peripheral motor neuropathy [Recovered/Resolved]
  - Nausea [Recovered/Resolved]
  - Hypertension [Recovered/Resolved]
  - Pulmonary hypertension [Fatal]

NARRATIVE: CASE EVENT DATE: 20160630
